FAERS Safety Report 23969690 (Version 4)
Quarter: 2024Q3

REPORT INFORMATION
  Report Type: Spontaneous
  Country: CA (occurrence: CA)
  Receive Date: 20240613
  Receipt Date: 20240801
  Transmission Date: 20241016
  Serious: Yes (Hospitalization, Other)
  Sender: CELLTRION
  Company Number: CA-PFIZER INC-202300204002

PATIENT

DRUGS (13)
  1. INFLECTRA [Suspect]
     Active Substance: INFLIXIMAB-DYYB
     Indication: Crohn^s disease
     Dosage: 220 MG, W0, W2, W6 AND Q8 WEEKS
     Route: 042
     Dates: start: 20230509
  2. INFLECTRA [Suspect]
     Active Substance: INFLIXIMAB-DYYB
     Dosage: 220 MG, W0, W2, W6 AND Q8 WEEKS
     Route: 042
     Dates: start: 20230525
  3. INFLECTRA [Suspect]
     Active Substance: INFLIXIMAB-DYYB
     Dosage: 220 MG WEEK 6
     Route: 042
     Dates: start: 20230622
  4. INFLECTRA [Suspect]
     Active Substance: INFLIXIMAB-DYYB
     Dosage: 220 MG, W0, W2, W6 AND Q8 WEEKS
     Route: 042
     Dates: start: 20231013
  5. INFLECTRA [Suspect]
     Active Substance: INFLIXIMAB-DYYB
     Dosage: 220 MG, W0, W2, W6 AND Q8 WEEKS (EVERY 8 WEEKS)
     Route: 042
     Dates: start: 20231207
  6. INFLECTRA [Suspect]
     Active Substance: INFLIXIMAB-DYYB
     Dosage: 220 MG, AFTER 8 WEEKS AND 4 DAYS (W0, W2, W6 AND Q8 WEEKS)
     Route: 042
     Dates: start: 20240205
  7. INFLECTRA [Suspect]
     Active Substance: INFLIXIMAB-DYYB
     Dosage: 220 MG, AFTER 8 WEEKS AND 4 DAYS (W0, W2, W6 AND Q8 WEEKS)
     Route: 042
     Dates: start: 20240326
  8. INFLECTRA [Suspect]
     Active Substance: INFLIXIMAB-DYYB
     Dosage: 220 MG, AFTER 7 WEEKS (EVERY 6 WEEKS)
     Route: 042
     Dates: start: 20240514
  9. INFLECTRA [Suspect]
     Active Substance: INFLIXIMAB-DYYB
     Dosage: 220 MG (RESCUE DOSE UNKNOWN IF GIVEN )
     Route: 042
  10. HYDROMORPHONE [Concomitant]
     Active Substance: HYDROMORPHONE
     Dosage: 1 DF
     Route: 048
  11. PREDNISONE [Concomitant]
     Active Substance: PREDNISONE
     Dosage: 1 DF
  12. TYLENOL WITH CODEINE [Concomitant]
     Active Substance: ACETAMINOPHEN\CODEINE PHOSPHATE
     Dosage: 1 DF
     Dates: end: 20240112
  13. TYLENOL WITH CODEINE [Concomitant]
     Active Substance: ACETAMINOPHEN\CODEINE PHOSPHATE
     Dosage: 1 DF

REACTIONS (14)
  - Condition aggravated [Not Recovered/Not Resolved]
  - Tissue injury [Unknown]
  - Anastomotic leak [Unknown]
  - Drug ineffective [Unknown]
  - Feeding disorder [Unknown]
  - Dehydration [Unknown]
  - Weight decreased [Not Recovered/Not Resolved]
  - Depressed mood [Unknown]
  - Gastrointestinal sounds abnormal [Unknown]
  - Arthralgia [Not Recovered/Not Resolved]
  - Swelling [Unknown]
  - Illness [Not Recovered/Not Resolved]
  - Off label use [Unknown]
  - Inappropriate schedule of product administration [Unknown]

NARRATIVE: CASE EVENT DATE: 20230101
